FAERS Safety Report 7335818-9 (Version None)
Quarter: 2011Q1

REPORT INFORMATION
  Report Type: 
  Country: None (occurrence: None)
  Receive Date: 20110302
  Receipt Date: 20110302
  Transmission Date: 20110831
  Serious: Yes (Life-Threatening, Hospitalization)
  Sender: FDA-Public Use
  Company Number: None

PATIENT
  Age: 25 Year
  Sex: Male
  Weight: 90.7194 kg

DRUGS (1)
  1. CIPRO [Suspect]
     Indication: PROSTATOMEGALY
     Dosage: 500MG 2X PO
     Route: 048
     Dates: start: 20050820, end: 20051031

REACTIONS (1)
  - ILL-DEFINED DISORDER [None]
